FAERS Safety Report 6687481-8 (Version None)
Quarter: 2010Q2

REPORT INFORMATION
  Report Type: 
  Country: None (occurrence: None)
  Receive Date: 20100416
  Receipt Date: 20100416
  Transmission Date: 20101027
  Serious: Yes (Other)
  Sender: FDA-Public Use
  Company Number: None

PATIENT
  Age: 55 Year
  Sex: Female
  Weight: 58.9676 kg

DRUGS (9)
  1. ABILIFY [Suspect]
     Indication: ANXIETY
     Dosage: 20 MG DAILY PO
     Route: 048
     Dates: start: 20100320
  2. ABILIFY [Suspect]
     Indication: DEPRESSION
     Dosage: 20 MG DAILY PO
     Route: 048
     Dates: start: 20100320
  3. ABILIFY [Suspect]
     Indication: ANXIETY
     Dosage: 20 MG DAILY PO
     Route: 048
     Dates: start: 20100324
  4. ABILIFY [Suspect]
     Indication: DEPRESSION
     Dosage: 20 MG DAILY PO
     Route: 048
     Dates: start: 20100324
  5. BUSPAR [Concomitant]
  6. CYMBALTA [Concomitant]
  7. CLONAZEPAM [Concomitant]
  8. PANICYL [Concomitant]
  9. VITAMIN/MINERALS [Concomitant]

REACTIONS (10)
  - ABDOMINAL DISTENSION [None]
  - ANXIETY [None]
  - ARTHRALGIA [None]
  - BALANCE DISORDER [None]
  - DIARRHOEA [None]
  - DISTURBANCE IN ATTENTION [None]
  - HEADACHE [None]
  - NAUSEA [None]
  - RESTLESSNESS [None]
  - VISUAL IMPAIRMENT [None]
